FAERS Safety Report 8364556-9 (Version None)
Quarter: 2012Q2

REPORT INFORMATION
  Report Type: 
  Country: None (occurrence: None)
  Receive Date: 20120516
  Receipt Date: 20120509
  Transmission Date: 20120825
  Serious: Yes (Hospitalization, Other)
  Sender: FDA-Public Use
  Company Number: US-BAYER-2011-112556

PATIENT
  Age: 33 Year
  Sex: Female
  Weight: 99.773 kg

DRUGS (10)
  1. ATENOLOL [Concomitant]
     Indication: HYPERTENSION
     Dosage: UNK
     Dates: start: 19980101, end: 20051001
  2. ACE INHIBITOR NOS [Concomitant]
     Dosage: UNK
     Dates: start: 20050101
  3. LISINOPRIL [Concomitant]
     Indication: HYPERTENSION
     Dosage: UNK
     Dates: start: 20060101, end: 20080101
  4. CYTOXAN [Concomitant]
  5. YASMIN [Suspect]
     Indication: MENSTRUATION IRREGULAR
     Dosage: UNK
     Route: 048
     Dates: start: 20051001, end: 20051201
  6. ALBUTEROL [Concomitant]
     Indication: HYPERTENSION
     Dosage: UNK
     Dates: start: 19890101
  7. ALDOMET [Concomitant]
  8. PLAVIX [Concomitant]
  9. MOTRIN [Concomitant]
     Dosage: UNK
     Dates: start: 20051014
  10. POTASSIUM CHLORIDE [Concomitant]
     Dosage: UNK
     Dates: start: 20051001

REACTIONS (8)
  - HYPOKINESIA [None]
  - THROMBOSIS [None]
  - MEMORY IMPAIRMENT [None]
  - CONFUSIONAL STATE [None]
  - PAIN [None]
  - NEUROLOGICAL SYMPTOM [None]
  - CEREBROVASCULAR ACCIDENT [None]
  - INJURY [None]
